FAERS Safety Report 17120581 (Version 5)
Quarter: 2020Q1

REPORT INFORMATION
  Report Type: Spontaneous
  Country: US (occurrence: US)
  Receive Date: 20191206
  Receipt Date: 20200218
  Transmission Date: 20200409
  Serious: Yes (Other)
  Sender: FDA-Public Use
  Company Number: US-ALLERGAN-1949452US

PATIENT
  Sex: Female

DRUGS (9)
  1. BOTOX [Suspect]
     Active Substance: ONABOTULINUMTOXINA
     Indication: OROPHARYNGEAL PAIN
  2. BOTOX [Suspect]
     Active Substance: ONABOTULINUMTOXINA
     Indication: FACIAL PAIN
  3. LEVOTHYROXINE. [Concomitant]
     Active Substance: LEVOTHYROXINE
     Indication: HYPOTHYROIDISM
  4. BOTOX [Suspect]
     Active Substance: ONABOTULINUMTOXINA
     Indication: EAR PAIN
  5. AREDS 2 [Concomitant]
     Active Substance: MINERALS\VITAMINS
  6. BOTOX [Suspect]
     Active Substance: ONABOTULINUMTOXINA
     Indication: EYE PAIN
  7. BOTOX [Suspect]
     Active Substance: ONABOTULINUMTOXINA
     Indication: HEADACHE
     Dosage: UNK, SINGLE
     Dates: start: 20191022, end: 20191022
  8. BOTOX [Suspect]
     Active Substance: ONABOTULINUMTOXINA
     Indication: RHINALGIA
  9. DILTIAZEM. [Concomitant]
     Active Substance: DILTIAZEM
     Indication: HEART RATE IRREGULAR

REACTIONS (6)
  - Off label use [Unknown]
  - Brow ptosis [Recovering/Resolving]
  - Eyelid ptosis [Recovering/Resolving]
  - Drug ineffective for unapproved indication [Unknown]
  - Hypersensitivity [Unknown]
  - Hypertension [Recovering/Resolving]
